FAERS Safety Report 5635968-9 (Version None)
Quarter: 2008Q1

REPORT INFORMATION
  Report Type: 
  Country: None (occurrence: None)
  Receive Date: 20080224
  Receipt Date: 20080213
  Transmission Date: 20080703
  Serious: Yes (Life-Threatening)
  Sender: FDA-Public Use
  Company Number: PHNU2008DE01074

PATIENT
  Age: 10 Year
  Sex: Male

DRUGS (1)
  1. TIMOX [Suspect]
     Indication: CONVULSION
     Dosage: 900 MG/D
     Route: 048
     Dates: start: 20071201, end: 20071218

REACTIONS (3)
  - ERYTHEMA MULTIFORME [None]
  - LIVER DISORDER [None]
  - PYREXIA [None]
